FAERS Safety Report 7376198-2 (Version None)
Quarter: 2011Q1

REPORT INFORMATION
  Report Type: 
  Country: None (occurrence: None)
  Receive Date: 20110325
  Receipt Date: 20110314
  Transmission Date: 20110831
  Serious: Yes (Hospitalization)
  Sender: FDA-Public Use
  Company Number: PHHO2011FR01043

PATIENT
  Sex: Male
  Weight: 75 kg

DRUGS (7)
  1. MYFORTIC [Concomitant]
     Indication: RENAL TRANSPLANT
     Dosage: 360X415
     Dates: start: 20101222
  2. TRANSFUSIONS [Concomitant]
     Indication: ANAEMIA
  3. BACTRIM [Concomitant]
     Indication: PROPHYLAXIS
     Dosage: UNK
  4. HAEMODIALYSIS [Concomitant]
     Indication: BLOOD CREATININE INCREASED
     Dosage: UNK
  5. CYMEVAN [Concomitant]
     Indication: PROPHYLAXIS
     Dosage: UNK
  6. NEORAL [Suspect]
     Indication: RENAL TRANSPLANT
     Dosage: 225 MG, UNK
     Dates: start: 20101222
  7. LASIX [Concomitant]
     Indication: POLYURIA
     Dosage: UNK

REACTIONS (4)
  - KIDNEY TRANSPLANT REJECTION [None]
  - COMPLICATIONS OF TRANSPLANTED KIDNEY [None]
  - ACUTE PULMONARY OEDEMA [None]
  - LUNG DISORDER [None]
